FAERS Safety Report 16424766 (Version 1)
Quarter: 2019Q2

REPORT INFORMATION
  Report Type: Spontaneous
  Country: FR (occurrence: FR)
  Receive Date: 20190613
  Receipt Date: 20190613
  Transmission Date: 20190711
  Serious: Yes (Hospitalization)
  Sender: FDA-Public Use
  Company Number: FR-PFIZER INC-2019246201

PATIENT
  Age: 74 Year
  Sex: Female
  Weight: 70 kg

DRUGS (15)
  1. ZYVOXID [Suspect]
     Active Substance: LINEZOLID
     Indication: INFECTION
     Dosage: 1200 MG, 1X/DAY
     Route: 048
     Dates: start: 20190417, end: 20190423
  2. RISPERIDONE MYLAN [Suspect]
     Active Substance: RISPERIDONE
     Indication: MENTAL DISORDER
     Dosage: 2 MG, 1X/DAY
     Route: 048
     Dates: start: 20190411
  3. LOVENOX [Concomitant]
     Active Substance: ENOXAPARIN SODIUM
     Dosage: 4000 IU, 1X/DAY
     Route: 058
     Dates: start: 20190411
  4. LEVOFLOXACINE ARROW [Suspect]
     Active Substance: LEVOFLOXACIN
     Indication: INFECTION
     Dosage: 1000 MG, 1X/DAY
     Route: 048
     Dates: start: 20190417, end: 20190501
  5. DUPHALAC [Concomitant]
     Active Substance: LACTULOSE
     Dosage: 60 G, 1X/DAY
     Route: 048
  6. LEVOTHYROX [Concomitant]
     Active Substance: LEVOTHYROXINE
     Dosage: 50 UG, 1X/DAY
     Route: 048
  7. HALDOL [Concomitant]
     Active Substance: HALOPERIDOL
     Dosage: 2 MG, 1X/DAY
     Route: 048
  8. SERESTA [Concomitant]
     Active Substance: OXAZEPAM
     Dosage: 50 MG, 1X/DAY
     Route: 048
  9. NEFOPAM MYLAN [Suspect]
     Active Substance: NEFOPAM
     Indication: PROCEDURAL PAIN
     Dosage: 1 DF, 1X/DAY
     Route: 042
     Dates: start: 20190411
  10. ATORVASTATINE EG [Concomitant]
     Active Substance: ATORVASTATIN CALCIUM
     Dosage: 10 MG, 1X/DAY
     Route: 048
  11. FUNGIZONE [Concomitant]
     Active Substance: AMPHOTERICIN B
     Dosage: UNK
     Route: 048
     Dates: start: 20190415
  12. RISEDRONATE SANDOZ [Concomitant]
     Dosage: 35 MG, 1X/DAY
     Route: 048
  13. PANTOPRAZOLE SODIUM. [Concomitant]
     Active Substance: PANTOPRAZOLE SODIUM
     Dosage: 20 MG, 1X/DAY
     Route: 048
  14. DOLIPRANE [Concomitant]
     Active Substance: ACETAMINOPHEN
     Dosage: UNK
     Route: 048
     Dates: start: 20190411
  15. IRBESARTAN EG [Concomitant]
     Active Substance: IRBESARTAN
     Dosage: 150 MG, 1X/DAY
     Route: 048

REACTIONS (1)
  - Seizure [Recovered/Resolved]

NARRATIVE: CASE EVENT DATE: 20190423
